FAERS Safety Report 7689462-4 (Version None)
Quarter: 2011Q3

REPORT INFORMATION
  Report Type: 
  Country: None (occurrence: None)
  Receive Date: 20110817
  Receipt Date: 20110808
  Transmission Date: 20111222
  Serious: Yes (Other)
  Sender: FDA-Public Use
  Company Number: GB-TEVA-296191ISR

PATIENT
  Age: 63 Year
  Sex: Female
  Weight: 80.6 kg

DRUGS (2)
  1. LISINOPRIL [Suspect]
     Indication: HYPERTENSION
  2. PERINDOPRIL [Suspect]
     Indication: HYPERTENSION

REACTIONS (1)
  - MIGRAINE WITH AURA [None]
